FAERS Safety Report 11121506 (Version 1)
Quarter: 2015Q2

REPORT INFORMATION
  Report Type: Spontaneous
  Country: US (occurrence: None)
  Receive Date: 20150518
  Receipt Date: 20150518
  Transmission Date: 20150821
  Serious: Yes (Other)
  Sender: FDA-Public Use
  Company Number: None

PATIENT
  Age: 60 Year
  Sex: Male

DRUGS (1)
  1. AFINITOR [Suspect]
     Active Substance: EVEROLIMUS
     Indication: NEOPLASM MALIGNANT
     Route: 048
     Dates: start: 2013, end: 2015

REACTIONS (5)
  - Fluid retention [None]
  - Cough [None]
  - Dysgeusia [None]
  - Oedema peripheral [None]
  - Fatigue [None]

NARRATIVE: CASE EVENT DATE: 20150401
